FAERS Safety Report 20617534 (Version 7)
Quarter: 2022Q2

REPORT INFORMATION
  Report Type: Spontaneous
  Country: US (occurrence: US)
  Receive Date: 20220321
  Receipt Date: 20220513
  Transmission Date: 20220721
  Serious: No
  Sender: FDA-Public Use
  Company Number: US-SANOFI-01019752

PATIENT
  Age: 77 Year
  Sex: Female

DRUGS (3)
  1. TOUJEO [Suspect]
     Active Substance: INSULIN GLARGINE
     Indication: Type 2 diabetes mellitus
     Dosage: 80 IU, QD
  2. TOUJEO [Suspect]
     Active Substance: INSULIN GLARGINE
     Dosage: 90 IU, QD
  3. TOUJEO [Suspect]
     Active Substance: INSULIN GLARGINE
     Dosage: 100 IU, QD

REACTIONS (6)
  - Lacrimation increased [Not Recovered/Not Resolved]
  - Blood glucose increased [Not Recovered/Not Resolved]
  - Blood glucose fluctuation [Unknown]
  - Visual impairment [Not Recovered/Not Resolved]
  - Cataract operation [Unknown]
  - Blood glucose decreased [Not Recovered/Not Resolved]
